FAERS Safety Report 5746551-9 (Version None)
Quarter: 2008Q2

REPORT INFORMATION
  Report Type: 
  Country: None (occurrence: None)
  Receive Date: 20080522
  Receipt Date: 20080305
  Transmission Date: 20081010
  Serious: No
  Sender: FDA-Public Use
  Company Number: US-BRISTOL-MYERS SQUIBB COMPANY-14103436

PATIENT
  Sex: Female

DRUGS (2)
  1. CYTOXAN [Suspect]
  2. DOCETAXEL [Suspect]
     Indication: BREAST CANCER
     Route: 042
     Dates: start: 20080124, end: 20080124

REACTIONS (2)
  - URTICARIA [None]
  - VEIN DISCOLOURATION [None]
